FAERS Safety Report 20449257 (Version 1)
Quarter: 2022Q1

REPORT INFORMATION
  Report Type: Spontaneous
  Country: US (occurrence: None)
  Receive Date: 20220208
  Receipt Date: 20220208
  Transmission Date: 20220423
  Serious: No
  Sender: FDA-Public Use
  Company Number: None

PATIENT
  Sex: Female

DRUGS (1)
  1. PROLIA [Suspect]
     Active Substance: DENOSUMAB
     Indication: Rheumatoid arthritis
     Dosage: 60MG EVERY 6 MONTHS SUBQ?
     Route: 058
     Dates: start: 201708

REACTIONS (2)
  - Therapy cessation [None]
  - Drug ineffective [None]
